FAERS Safety Report 21318964 (Version 1)
Quarter: 2022Q3

REPORT INFORMATION
  Report Type: Spontaneous
  Country: US (occurrence: US)
  Receive Date: 20220911
  Receipt Date: 20220911
  Transmission Date: 20221027
  Serious: No
  Sender: FDA-Public Use
  Company Number: US-SA-SAC20220830000402

PATIENT
  Sex: Female

DRUGS (1)
  1. AUBAGIO [Suspect]
     Active Substance: TERIFLUNOMIDE
     Indication: Multiple sclerosis
     Dosage: DOSE OR AMOUNT: 14MG FREQUENCY: DAILY
     Route: 048
     Dates: start: 202205

REACTIONS (1)
  - Heart rate abnormal [Unknown]

NARRATIVE: CASE EVENT DATE: 20220101
